FAERS Safety Report 4444339-2 (Version None)
Quarter: 2004Q3

REPORT INFORMATION
  Report Type: 
  Country: None (occurrence: None)
  Receive Date: 20040813
  Receipt Date: 20030707
  Transmission Date: 20050211
  Serious: Yes (Hospitalization)
  Sender: FDA-Public Use
  Company Number: US-JNJFOC-20040705081

PATIENT
  Age: 9 Month
  Sex: Male
  Weight: 8.1647 kg

DRUGS (2)
  1. IBUPROFEN [Suspect]
     Indication: PYREXIA
     Dosage: 75 MG, 1 IN 6 HOUR, ORAL
     Route: 048
     Dates: start: 20030208, end: 20030209
  2. TYLENOL [Concomitant]

REACTIONS (2)
  - CRYING [None]
  - UPPER GASTROINTESTINAL HAEMORRHAGE [None]
